FAERS Safety Report 11566702 (Version 1)
Quarter: 2015Q3

REPORT INFORMATION
  Report Type: Spontaneous
  Country: US (occurrence: US)
  Receive Date: 20150916
  Receipt Date: 20150916
  Transmission Date: 20151125
  Serious: No
  Sender: FDA-Public Use
  Company Number: US-ELI_LILLY_AND_COMPANY-US200906004749

PATIENT
  Sex: Female

DRUGS (1)
  1. FORTEO [Suspect]
     Active Substance: TERIPARATIDE

REACTIONS (6)
  - Sjogren^s syndrome [Not Recovered/Not Resolved]
  - Feeling jittery [Not Recovered/Not Resolved]
  - Erythema of eyelid [Not Recovered/Not Resolved]
  - Pain [Not Recovered/Not Resolved]
  - Dry eye [Not Recovered/Not Resolved]
  - Nausea [Not Recovered/Not Resolved]
